FAERS Safety Report 25469398 (Version 1)
Quarter: 2025Q2

REPORT INFORMATION
  Report Type: Spontaneous
  Country: SE (occurrence: SE)
  Receive Date: 20250623
  Receipt Date: 20250623
  Transmission Date: 20250716
  Serious: Yes (Hospitalization)
  Sender: MYLAN
  Company Number: None

PATIENT
  Age: 16 Year
  Sex: Male

DRUGS (4)
  1. SERTRALINE [Suspect]
     Active Substance: SERTRALINE HYDROCHLORIDE
     Indication: Anxiety
     Dosage: 1 DOSAGE FORM, QD (1 TABLET ONCE A DAY AMOUNT HAS VARIED OVER TIME UP TO A MAXIMUM OF 75 MG)
     Dates: start: 20220501
  2. SERTRALINE [Suspect]
     Active Substance: SERTRALINE HYDROCHLORIDE
     Indication: Obsessive-compulsive disorder
     Dosage: 1 DOSAGE FORM, QD (1 TABLET ONCE A DAY AMOUNT HAS VARIED OVER TIME UP TO A MAXIMUM OF 75 MG)
     Route: 065
     Dates: start: 20220501
  3. SERTRALINE [Suspect]
     Active Substance: SERTRALINE HYDROCHLORIDE
     Dosage: 1 DOSAGE FORM, QD (1 TABLET ONCE A DAY AMOUNT HAS VARIED OVER TIME UP TO A MAXIMUM OF 75 MG)
     Route: 065
     Dates: start: 20220501
  4. SERTRALINE [Suspect]
     Active Substance: SERTRALINE HYDROCHLORIDE
     Dosage: 1 DOSAGE FORM, QD (1 TABLET ONCE A DAY AMOUNT HAS VARIED OVER TIME UP TO A MAXIMUM OF 75 MG)
     Dates: start: 20220501

REACTIONS (6)
  - Sleep disorder [Recovering/Resolving]
  - Cognitive disorder [Recovering/Resolving]
  - Fatigue [Recovering/Resolving]
  - Restlessness [Recovering/Resolving]
  - Tremor [Recovering/Resolving]
  - Palpitations [Recovered/Resolved]

NARRATIVE: CASE EVENT DATE: 20220601
